FAERS Safety Report 7833874-2 (Version None)
Quarter: 2011Q4

REPORT INFORMATION
  Report Type: 
  Country: None (occurrence: None)
  Receive Date: 20111024
  Receipt Date: 20111014
  Transmission Date: 20120403
  Serious: Yes (Death, Other)
  Sender: FDA-Public Use
  Company Number: GB-GENZYME-FABR-1002114

PATIENT
  Sex: Female
  Weight: 62 kg

DRUGS (8)
  1. FABRAZYME [Suspect]
     Dosage: 0.5 MG/KG, UNK
     Route: 042
     Dates: start: 20090902
  2. FABRAZYME [Suspect]
     Dosage: 1 MG/KG, UNK
     Route: 042
     Dates: start: 20070423, end: 20090901
  3. FABRAZYME [Suspect]
     Dosage: 0.2 MG/KG, UNK
     Route: 042
     Dates: start: 20091028
  4. FABRAZYME [Suspect]
     Dosage: 0.3 MG/KG, UNK
     Route: 042
     Dates: start: 20100804
  5. FABRAZYME [Suspect]
     Indication: FABRY'S DISEASE
     Dosage: 1 MG/KG, Q2W
     Dates: start: 20101124
  6. ALLOPURINOL [Concomitant]
     Indication: PRODUCT USED FOR UNKNOWN INDICATION
     Dosage: 100 MG, UNK
  7. ASPIRIN [Concomitant]
     Indication: PRODUCT USED FOR UNKNOWN INDICATION
     Dosage: 75 MG, UNK
  8. BETA-AGONIST INHALER [Concomitant]
     Indication: ASTHMA
     Dosage: 6X DAY

REACTIONS (2)
  - HYPERTROPHIC CARDIOMYOPATHY [None]
  - LEFT VENTRICULAR FAILURE [None]
